FAERS Safety Report 9146390 (Version 1)
Quarter: 2013Q1

REPORT INFORMATION
  Report Type: Spontaneous
  Country: DK (occurrence: DK)
  Receive Date: 20130307
  Receipt Date: 20130307
  Transmission Date: 20140127
  Serious: Yes (Death, Other)
  Sender: FDA-Public Use
  Company Number: DK-ELI_LILLY_AND_COMPANY-DK201301006821

PATIENT
  Age: 19 Year
  Sex: Male
  Weight: 93 kg

DRUGS (10)
  1. ZYPREXA [Suspect]
     Indication: SCHIZOPHRENIA
     Dosage: 15 MG, QD
     Route: 048
     Dates: start: 20010129, end: 20020506
  2. RIVOTRIL [Concomitant]
     Indication: SCHIZOPHRENIA
     Dosage: 2 MG, QID
     Route: 048
     Dates: start: 20020310, end: 20030413
  3. TRUXAL [Concomitant]
     Indication: SCHIZOPHRENIA
     Dosage: 100 MG, BID
     Route: 048
     Dates: start: 20010126, end: 20030413
  4. TRUXAL [Concomitant]
     Dosage: 200 MG, TID
  5. IMOVANE [Concomitant]
     Indication: SCHIZOPHRENIA
     Dosage: 7.5 MG, BID
     Route: 048
     Dates: start: 20010126, end: 20030413
  6. CISORDINOL                              /DEN/ [Concomitant]
     Indication: SCHIZOPHRENIA
     Dosage: 10 MG, QD
     Route: 048
     Dates: start: 20010216, end: 20021029
  7. CISORDINOL                              /DEN/ [Concomitant]
     Dosage: 30 MG, QD
  8. CISORDINOL DEPOT [Concomitant]
     Indication: SCHIZOPHRENIA
     Dosage: 125 MG, UNK
     Dates: start: 20020814, end: 20020926
  9. SEROQUEL [Concomitant]
     Indication: SCHIZOPHRENIA
     Dosage: 200 MG, UNK
     Route: 048
     Dates: start: 20021011, end: 20030413
  10. BURONIL [Concomitant]
     Indication: SCHIZOPHRENIA
     Dosage: UNK
     Route: 048
     Dates: start: 20030404, end: 20030413

REACTIONS (11)
  - Sudden death [Fatal]
  - Convulsion [Unknown]
  - Pulmonary haemorrhage [Unknown]
  - Gingival bleeding [Unknown]
  - Splenomegaly [Unknown]
  - Visual acuity reduced [Unknown]
  - Back pain [Unknown]
  - Obesity [Unknown]
  - Tension [Unknown]
  - Restlessness [Unknown]
  - Vomiting [Unknown]
